FAERS Safety Report 18755167 (Version 3)
Quarter: 2021Q3

REPORT INFORMATION
  Report Type: Report from Study
  Country: US (occurrence: US)
  Receive Date: 20210119
  Receipt Date: 20210927
  Transmission Date: 20211014
  Serious: Yes (Other)
  Sender: FDA-Public Use
  Company Number: NVSC2021US006412

PATIENT
  Age: 30 Year
  Sex: Female
  Weight: 124.72 kg

DRUGS (3)
  1. ENTRESTO [Suspect]
     Active Substance: SACUBITRIL\VALSARTAN
     Indication: PRODUCT USED FOR UNKNOWN INDICATION
     Dosage: 200 MG, BID, 97/103 MG
     Route: 048
     Dates: start: 202007
  2. DEMEROL [Suspect]
     Active Substance: MEPERIDINE HYDROCHLORIDE
     Indication: PRODUCT USED FOR UNKNOWN INDICATION
     Dosage: UNK
     Route: 065
  3. LISINOPRIL. [Suspect]
     Active Substance: LISINOPRIL
     Indication: PRODUCT USED FOR UNKNOWN INDICATION
     Dosage: UNK
     Route: 065
     Dates: start: 202003, end: 202007

REACTIONS (15)
  - Pain [Unknown]
  - Serotonin syndrome [Unknown]
  - Chondropathy [Unknown]
  - Psychogenic seizure [Unknown]
  - Syncope [Recovered/Resolved]
  - Dizziness [Recovered/Resolved]
  - COVID-19 [Unknown]
  - Back pain [Unknown]
  - Chest discomfort [Unknown]
  - Stress [Unknown]
  - Hypotension [Recovered/Resolved]
  - Weight loss poor [Unknown]
  - Drug hypersensitivity [Unknown]
  - Chest discomfort [Recovered/Resolved]
  - Sleep deficit [Unknown]

NARRATIVE: CASE EVENT DATE: 202003
